FAERS Safety Report 7677463-1 (Version None)
Quarter: 2011Q3

REPORT INFORMATION
  Report Type: 
  Country: None (occurrence: None)
  Receive Date: 20110811
  Receipt Date: 20110314
  Transmission Date: 20111222
  Serious: Yes (Other)
  Sender: FDA-Public Use
  Company Number: US-BRISTOL-MYERS SQUIBB COMPANY-15605546

PATIENT
  Age: 61 Year
  Sex: Male

DRUGS (2)
  1. REYATAZ [Suspect]
  2. ATRIPLA [Suspect]
     Dosage: THERAPY STARTED:2 YEARS AGO

REACTIONS (2)
  - DEPRESSION [None]
  - ABNORMAL DREAMS [None]
